FAERS Safety Report 20847605 (Version 2)
Quarter: 2023Q2

REPORT INFORMATION
  Report Type: Other
  Country: DE (occurrence: None)
  Receive Date: 20220519
  Receipt Date: 20230417
  Transmission Date: 20230722
  Serious: No
  Sender: FDA-Public Use
  Company Number: DE-ROCHE-2571814

PATIENT
  Age: 33 Year
  Sex: Male

DRUGS (4)
  1. OCREVUS [Suspect]
     Active Substance: OCRELIZUMAB
     Indication: Relapsing-remitting multiple sclerosis
     Route: 042
     Dates: start: 201903
  2. OCREVUS [Suspect]
     Active Substance: OCRELIZUMAB
     Route: 042
     Dates: start: 20200323
  3. OCREVUS [Suspect]
     Active Substance: OCRELIZUMAB
     Route: 042
     Dates: start: 20210415
  4. OCREVUS [Suspect]
     Active Substance: OCRELIZUMAB
     Dosage: SUBSEQUENT DOSE ON 31/MAR/2023 (8TH MAINTENANCE DOSE)
     Route: 042
     Dates: start: 201909

REACTIONS (8)
  - Fatigue [Recovered/Resolved]
  - Psoriasis [Not Recovered/Not Resolved]
  - Gastritis [Not Recovered/Not Resolved]
  - Mucosal inflammation [Recovering/Resolving]
  - Influenza [Recovered/Resolved]
  - Dyspepsia [Recovered/Resolved]
  - Choking sensation [Recovered/Resolved]
  - Incorrect drug administration rate [Unknown]

NARRATIVE: CASE EVENT DATE: 20190301
